FAERS Safety Report 9825672 (Version 2)
Quarter: 2014Q1

REPORT INFORMATION
  Report Type: Spontaneous
  Country: US (occurrence: US)
  Receive Date: 20140117
  Receipt Date: 20140117
  Transmission Date: 20141002
  Serious: Yes (Hospitalization)
  Sender: FDA-Public Use
  Company Number: US-ASTRAZENECA-2013SE03851

PATIENT
  Age: 43 Year
  Sex: Female
  Weight: 54.4 kg

DRUGS (9)
  1. SYMBICORT PMDI [Suspect]
     Dosage: UNKNOWN FREQUENCY AND DOSING
     Route: 055
  2. SEROQUEL XR [Suspect]
     Indication: SLEEP DISORDER
     Route: 048
     Dates: start: 2011, end: 20140108
  3. SEROQUEL XR [Suspect]
     Indication: ANXIETY
     Route: 048
     Dates: start: 2011, end: 20140108
  4. SEROQUEL XR [Suspect]
     Indication: DEPRESSION
     Route: 048
     Dates: start: 2011, end: 20140108
  5. SEROQUEL XR [Suspect]
     Indication: SLEEP DISORDER
     Dosage: 150 MG EVERY OTHER NIGHT
     Route: 048
  6. SEROQUEL XR [Suspect]
     Indication: ANXIETY
     Dosage: 150 MG EVERY OTHER NIGHT
     Route: 048
  7. SEROQUEL XR [Suspect]
     Indication: DEPRESSION
     Dosage: 150 MG EVERY OTHER NIGHT
     Route: 048
  8. LYRICA [Concomitant]
     Indication: FIBROMYALGIA
  9. TRAMADOL [Concomitant]
     Indication: PAIN

REACTIONS (4)
  - Pneumothorax [Unknown]
  - Insomnia [Unknown]
  - Intentional drug misuse [Unknown]
  - Drug dose omission [Unknown]
